FAERS Safety Report 22105546 (Version 2)
Quarter: 2024Q1

REPORT INFORMATION
  Report Type: Report from Study
  Country: IT (occurrence: IT)
  Receive Date: 20230317
  Receipt Date: 20240307
  Transmission Date: 20240410
  Serious: Yes (Hospitalization)
  Sender: FDA-Public Use
  Company Number: None

PATIENT
  Age: 16 Year
  Sex: Male
  Weight: 43 kg

DRUGS (3)
  1. VINCRISTINE [Suspect]
     Active Substance: VINCRISTINE
     Indication: Product used for unknown indication
     Dosage: 2 MG IV IN PUSH,VINCRISTINE TEVA ITALY
     Route: 042
     Dates: start: 20230208, end: 20230208
  2. MITOXANTRONE [Suspect]
     Active Substance: MITOXANTRONE HYDROCHLORIDE
     Indication: Leukaemia recurrent
     Dosage: DOSE OF 15 MG. TO AVOID FURTHER TOXICITY, THE SECOND DOSE FORESEEN BY THE INTREALL HR PROTOCOL IS...
     Route: 042
     Dates: start: 20230206, end: 20230206
  3. ONCASPAR [Suspect]
     Active Substance: PEGASPARGASE
     Indication: Product used for unknown indication
     Route: 042
     Dates: start: 20230208, end: 20230208

REACTIONS (3)
  - Thrombocytopenia [Recovering/Resolving]
  - Anaemia [Recovering/Resolving]
  - Neutropenia [Recovering/Resolving]

NARRATIVE: CASE EVENT DATE: 20230207
